FAERS Safety Report 11518253 (Version 2)
Quarter: 2015Q4

REPORT INFORMATION
  Report Type: Spontaneous
  Country: TW (occurrence: TW)
  Receive Date: 20150917
  Receipt Date: 20151105
  Transmission Date: 20160304
  Serious: Yes (Hospitalization)
  Sender: FDA-Public Use
  Company Number: TW-BIOMARINAP-TW-2015-107379

PATIENT
  Sex: Female
  Weight: 33.8 kg

DRUGS (1)
  1. NAGLAZYME [Suspect]
     Active Substance: GALSULFASE
     Indication: MUCOPOLYSACCHARIDOSIS IV
     Dosage: 1 MG/KG, QW
     Route: 042
     Dates: start: 20140308

REACTIONS (6)
  - Myalgia [Recovering/Resolving]
  - Feeling cold [Recovering/Resolving]
  - Hypoaesthesia [Recovering/Resolving]
  - Headache [Recovering/Resolving]
  - Spinal cord compression [Recovering/Resolving]
  - Cervical spinal stenosis [Recovering/Resolving]
